FAERS Safety Report 16262686 (Version 2)
Quarter: 2020Q1

REPORT INFORMATION
  Report Type: Spontaneous
  Country: US (occurrence: US)
  Receive Date: 20190502
  Receipt Date: 20200112
  Transmission Date: 20200409
  Serious: Yes (Death, Hospitalization)
  Sender: FDA-Public Use
  Company Number: US-B.I. PHARMACEUTICALS,INC./RIDGEFIELD-2019-BI-020031

PATIENT
  Age: 75 Year
  Sex: Male
  Weight: 86.86 kg

DRUGS (45)
  1. PRADAXA [Suspect]
     Active Substance: DABIGATRAN ETEXILATE MESYLATE
     Indication: ATRIAL FIBRILLATION
     Route: 048
     Dates: start: 20140804, end: 20160505
  2. KEPPRA [Concomitant]
     Active Substance: LEVETIRACETAM
     Dosage: 500MG TAB TAKE TWO TABLETS BY MOUTH TWO  ?TIMES A DAY (FOR SEIZURES)
     Route: 048
  3. IRON [Concomitant]
     Active Substance: IRON
     Dosage: FERROUS SULFATE 325 MG ONE TABLET DAILY
     Route: 065
  4. PROPRANOLOL [PROPRANOLOL HYDROCHLORIDE] [Concomitant]
     Active Substance: PROPRANOLOL HYDROCHLORIDE
     Indication: PRODUCT USED FOR UNKNOWN INDICATION
     Dosage: 10MG 0.5 TAB(S) BID
     Route: 048
  5. OXYCODONE AND ACETAMINOPHEN [Concomitant]
     Active Substance: ACETAMINOPHEN\OXYCODONE HYDROCHLORIDE
     Indication: PRODUCT USED FOR UNKNOWN INDICATION
     Route: 065
  6. SPIRONOLACTONE. [Concomitant]
     Active Substance: SPIRONOLACTONE
     Dosage: SPIRONOLACTONE 100 MG DAILY
     Route: 065
  7. SYNTHROID [Concomitant]
     Active Substance: LEVOTHYROXINE SODIUM
     Route: 065
  8. TRAMADOL. [Concomitant]
     Active Substance: TRAMADOL
     Indication: PRODUCT USED FOR UNKNOWN INDICATION
     Dosage: IMMEDIATE RELEASE, 100MG 2 TAB(S) Q8HR PRN
     Route: 048
  9. DILTIAZEM [DILTIAZEM HYDROCHLORIDE] [Concomitant]
     Active Substance: DILTIAZEM HYDROCHLORIDE
     Indication: BLOOD PRESSURE MEASUREMENT
     Dosage: EXTENDED RELEASE CAPSULE
     Route: 048
  10. KEPPRA [Concomitant]
     Active Substance: LEVETIRACETAM
     Route: 065
  11. METFORMIN HCL [Concomitant]
     Active Substance: METFORMIN HYDROCHLORIDE
     Indication: DIABETES MELLITUS
     Route: 048
  12. PREDNISONE. [Concomitant]
     Active Substance: PREDNISONE
     Indication: PRODUCT USED FOR UNKNOWN INDICATION
     Dosage: PO 50MG 5 TAB(S) DAILY
     Route: 048
  13. HUMALOG [Concomitant]
     Active Substance: INSULIN LISPRO
     Indication: PRODUCT USED FOR UNKNOWN INDICATION
     Dosage: MODERATE DOSE MEAL + CORRECTIVE
  14. XANAX [Concomitant]
     Active Substance: ALPRAZOLAM
     Indication: ANXIETY
     Route: 048
  15. IRON [Concomitant]
     Active Substance: IRON
     Indication: PRODUCT USED FOR UNKNOWN INDICATION
     Dosage: CAPSULE, EXTENDED RELEASE
     Route: 048
  16. PROTONIX [OMEPRAZOLE] [Concomitant]
     Active Substance: OMEPRAZOLE
     Indication: PRODUCT USED FOR UNKNOWN INDICATION
     Dosage: TABLET, DELAYED RELEASE
     Route: 048
  17. LACTULOSE. [Concomitant]
     Active Substance: LACTULOSE
     Indication: PRODUCT USED FOR UNKNOWN INDICATION
     Dosage: 0.67 GM/ML, 30 ML UD 20 GM 30 ML, LACTULOSE 30 ML LIQUID THREE TIMES A DAY.
     Route: 048
  18. SODIUM CHLORIDE 0.9% [Concomitant]
     Active Substance: SODIUM CHLORIDE
     Dosage: 0.9 % OF SYRINGE 10 ML 10 ML
     Route: 065
  19. NALOXONE [Concomitant]
     Active Substance: NALOXONE
     Indication: PRODUCT USED FOR UNKNOWN INDICATION
     Dosage: 0.1 MG 0.25 ML EVERY 2 MIN PRN
     Route: 042
  20. LEVEMIR [Concomitant]
     Active Substance: INSULIN DETEMIR
     Indication: PRODUCT USED FOR UNKNOWN INDICATION
     Dosage: 13UNIL(S) 0.13 ML DAILY
     Route: 065
  21. LANTUS [Concomitant]
     Active Substance: INSULIN GLARGINE
     Indication: DIABETES MELLITUS
     Dosage: 100 UNITS/ML SUBCUTANEOUS SOLUTION) 13 UNIT(S) UNDER THE?SKIN DAILY.
     Route: 058
  22. LANTUS [Concomitant]
     Active Substance: INSULIN GLARGINE
     Dosage: 100 UNITS/ML, SUBCUTANEOUS SOLUTION.  INJECT 90 UNITS UNDER THE SKIN DAILY.
     Route: 058
  23. ASPIRIN [ACETYLSALICYLIC ACID] [Concomitant]
     Active Substance: ASPIRIN
     Indication: PAIN
     Dosage: ASPIRIN 81 MG TABLET CHEWABLE 1 TABLET ONCE A DAY
  24. AMOXICILLIN. [Concomitant]
     Active Substance: AMOXICILLIN
     Indication: PRODUCT USED FOR UNKNOWN INDICATION
     Route: 065
  25. SPIRONOLACTONE. [Concomitant]
     Active Substance: SPIRONOLACTONE
     Indication: PRODUCT USED FOR UNKNOWN INDICATION
     Dosage: 100MG 4 TAB(S) DAILY
     Route: 065
  26. XANAX [Concomitant]
     Active Substance: ALPRAZOLAM
     Dosage: TABLET BY ORAL ROUTE, AS NEEDED,  XANAX 0.25 MG THREE TIMES DAILY AS NEEDED FOR ANXIETY.
     Route: 048
  27. ALBUTEROL SULFATE HFA [Concomitant]
     Active Substance: ALBUTEROL SULFATE
     Indication: PRODUCT USED FOR UNKNOWN INDICATION
     Dosage: 90 MCG/ACTUATION 1 AEROSOL INHALER
     Route: 055
  28. PREDNISONE. [Concomitant]
     Active Substance: PREDNISONE
     Dosage: PREDNISONE 20 MG DAILY
     Route: 065
  29. SYNTHROID [Concomitant]
     Active Substance: LEVOTHYROXINE SODIUM
     Indication: DRUG THERAPY
     Dosage: TAKE ONE TABLET BY MOUTH EVERY MORNING ON AN EMPTY STOMACH,30 MINUTES BEFORE BREAKFAST (FOR THYROID)
     Route: 048
  30. LASIX [Concomitant]
     Active Substance: FUROSEMIDE
     Route: 048
  31. LASIX [Concomitant]
     Active Substance: FUROSEMIDE
     Dosage: 4ML
     Route: 042
  32. LASIX [Concomitant]
     Active Substance: FUROSEMIDE
     Dosage: (DIURETIC/WATER PILL)
     Route: 048
  33. LANOXIN [Concomitant]
     Active Substance: DIGOXIN
     Indication: DRUG THERAPY
     Dosage: 0.125MG TAB TAKE ONE TABLET BY   MOUTH EVERY DAY (FOR THE HEART)
     Route: 048
  34. KEPPRA [Concomitant]
     Active Substance: LEVETIRACETAM
     Indication: SEIZURE
     Route: 048
  35. MAGNESIUM [Concomitant]
     Active Substance: MAGNESIUM
     Indication: PRODUCT USED FOR UNKNOWN INDICATION
     Route: 048
  36. POTASSIUM [POTASSIUM CHLORIDE] [Concomitant]
     Active Substance: POTASSIUM CHLORIDE
     Indication: MINERAL SUPPLEMENTATION
     Dosage: CAPSULE EXTENDED RELEASE,
     Route: 048
  37. SODIUM CHLORIDE 0.9% [Concomitant]
     Active Substance: SODIUM CHLORIDE
     Indication: PRODUCT USED FOR UNKNOWN INDICATION
     Dosage: 0.9 % OF SYRINGE 3 ML 3ML
     Route: 065
  38. DIVALPROEX [Concomitant]
     Active Substance: DIVALPROEX SODIUM
     Indication: SEIZURE
     Dosage: 500MG 24HR (ER) SA TAB TAKE FOUR TABLETS
     Route: 048
  39. KEPPRA [Concomitant]
     Active Substance: LEVETIRACETAM
     Dosage: KEPPRA 500 MG HALF TABLET DAI1Y, 250MG 0.5 TAB(S) DAILY
     Route: 065
  40. LANTUS [Concomitant]
     Active Substance: INSULIN GLARGINE
     Dosage: PATIENT NOW TAKES PRN.
     Route: 058
  41. LISINOPRIL. [Concomitant]
     Active Substance: LISINOPRIL
     Indication: PRODUCT USED FOR UNKNOWN INDICATION
     Dosage: 10MG 1 TAB(S) DAILY
     Route: 048
  42. ASPIRIN [ACETYLSALICYLIC ACID] [Concomitant]
     Active Substance: ASPIRIN
     Dosage: ASPIRIN 325 MG EVERY 4 HOURS AS NEEDED FOR PAIN
     Route: 065
  43. PROPRANOLOL [PROPRANOLOL HYDROCHLORIDE] [Concomitant]
     Active Substance: PROPRANOLOL HYDROCHLORIDE
     Dosage: PROPRANOLOL 20 MG HALF TABLET TWICE DAILY.
     Route: 065
  44. LASIX [Concomitant]
     Active Substance: FUROSEMIDE
     Indication: PRODUCT USED FOR UNKNOWN INDICATION
     Dosage: LASIX 80 MG HALF-TABLET DAILY
     Route: 048
  45. PERCOCET [Concomitant]
     Active Substance: ACETAMINOPHEN\OXYCODONE HYDROCHLORIDE
     Indication: PAIN
     Dosage: PERCOCET 5/325 MG ONE TABLET EVERY 4 HOURS AS NEED FOR PAIN.
     Route: 065

REACTIONS (1)
  - Upper gastrointestinal haemorrhage [Fatal]

NARRATIVE: CASE EVENT DATE: 20160505
